FAERS Safety Report 4290343-7 (Version None)
Quarter: 2004Q1

REPORT INFORMATION
  Report Type: 
  Country: None (occurrence: None)
  Receive Date: 20040210
  Receipt Date: 20040203
  Transmission Date: 20041129
  Serious: Yes (Hospitalization, Other)
  Sender: FDA-Public Use
  Company Number: PHNU2004DE00778

PATIENT
  Age: 71 Year
  Sex: Female

DRUGS (7)
  1. GLEEVEC [Suspect]
     Indication: CHRONIC MYELOID LEUKAEMIA
     Dosage: 600MG/DAY
     Route: 048
     Dates: start: 20040129, end: 20040203
  2. METFORMIN HCL [Suspect]
     Route: 048
  3. MOXONIDINE [Concomitant]
     Route: 048
  4. BEZAFIBRATE [Concomitant]
     Route: 065
  5. BLOPRESS [Concomitant]
     Route: 048
  6. ACETYLSALICYLIC ACID SRT [Concomitant]
     Route: 065
  7. L-THYROXIN ^HENNING BERLIN^ [Concomitant]
     Route: 048

REACTIONS (9)
  - BLOOD CREATININE INCREASED [None]
  - BLOOD PH DECREASED [None]
  - BLOOD UREA INCREASED [None]
  - DIARRHOEA [None]
  - LACTIC ACIDOSIS [None]
  - LEUKOCYTOSIS [None]
  - NAUSEA [None]
  - RENAL FAILURE ACUTE [None]
  - SOMNOLENCE [None]
